FAERS Safety Report 8266428-7 (Version None)
Quarter: 2012Q2

REPORT INFORMATION
  Report Type: 
  Country: None (occurrence: None)
  Receive Date: 20120406
  Receipt Date: 20120328
  Transmission Date: 20120825
  Serious: Yes (Other)
  Sender: FDA-Public Use
  Company Number: US-ASTRAZENECA-2012SE20956

PATIENT
  Age: 68 Year
  Sex: Male
  Weight: 80.7 kg

DRUGS (2)
  1. AMLODIPINE [Concomitant]
  2. TENORMIN [Suspect]
     Indication: HYPERTENSION
     Route: 048
     Dates: start: 20080601, end: 20111201

REACTIONS (2)
  - PROSTATE CANCER [None]
  - ANAPHYLACTIC REACTION [None]
